FAERS Safety Report 7020155-2 (Version None)
Quarter: 2010Q3

REPORT INFORMATION
  Report Type: 
  Country: None (occurrence: None)
  Receive Date: 20100929
  Receipt Date: 20100827
  Transmission Date: 20110219
  Serious: No
  Sender: FDA-Public Use
  Company Number: US-JNJFOC-20100809315

PATIENT
  Sex: Female
  Weight: 122.47 kg

DRUGS (2)
  1. INVEGA SUSTENNA [Suspect]
     Indication: HALLUCINATION, AUDITORY
     Route: 030
  2. UNKNOWN MEDICATION [Concomitant]

REACTIONS (3)
  - ACTIVITIES OF DAILY LIVING IMPAIRED [None]
  - ASTHENOPIA [None]
  - SOMNOLENCE [None]
